FAERS Safety Report 10206346 (Version 2)
Quarter: 2014Q2

REPORT INFORMATION
  Report Type: Spontaneous
  Country: US (occurrence: None)
  Receive Date: 20140527
  Receipt Date: 20140529
  Transmission Date: 20141212
  Serious: Yes (Hospitalization)
  Sender: FDA-Public Use
  Company Number: UNT-2014-000477

PATIENT
  Age: 78 Year
  Sex: Female
  Weight: 82.7 kg

DRUGS (1)
  1. REMODULIN [Suspect]
     Indication: PULMONARY ARTERIAL HYPERTENSION
     Route: 058
     Dates: start: 20140429

REACTIONS (3)
  - Dyspnoea [None]
  - Epistaxis [None]
  - Headache [None]
